FAERS Safety Report 5166376-5 (Version None)
Quarter: 2006Q4

REPORT INFORMATION
  Report Type: 
  Country: None (occurrence: None)
  Receive Date: 20061129
  Receipt Date: 20061117
  Transmission Date: 20070319
  Serious: Yes (Other)
  Sender: FDA-Public Use
  Company Number: CLOF-10382

PATIENT
  Age: 60 Year
  Sex: Female

DRUGS (9)
  1. CLOFARABINE [Suspect]
     Indication: ACUTE MYELOID LEUKAEMIA
     Dosage: 35 MG QD X 5 IV
     Route: 042
     Dates: start: 20061005, end: 20061009
  2. IDARUBICIN HCL [Suspect]
     Indication: ACUTE MYELOID LEUKAEMIA
     Dosage: 16 MG QD X 3 IV
     Route: 042
     Dates: start: 20061005, end: 20061007
  3. AUGMENTIN '125' [Concomitant]
  4. VORICONAZOLE [Concomitant]
  5. VALTREX [Concomitant]
  6. MEGACE [Concomitant]
  7. NEXIUM [Concomitant]
  8. POTASSIUM ACETATE [Concomitant]
  9. MAGNESIUM [Concomitant]

REACTIONS (1)
  - BONE MARROW FAILURE [None]
